FAERS Safety Report 20625820 (Version 2)
Quarter: 2022Q2

REPORT INFORMATION
  Report Type: Report from Study
  Country: US (occurrence: US)
  Receive Date: 20220323
  Receipt Date: 20220422
  Transmission Date: 20220720
  Serious: Yes (Other)
  Sender: FDA-Public Use
  Company Number: US-ABBVIE-22K-163-4326722-00

PATIENT
  Age: 62 Year
  Sex: Female

DRUGS (5)
  1. HUMIRA [Suspect]
     Active Substance: ADALIMUMAB
     Indication: Rheumatoid arthritis
     Dosage: CITRATE FREE
     Route: 058
  2. HUMIRA [Suspect]
     Active Substance: ADALIMUMAB
     Dosage: CITRATE FREE
     Route: 058
  3. PFIZER BIONTECH COVID-19 [Concomitant]
     Indication: COVID-19 immunisation
     Dosage: DOSE 1
     Route: 030
  4. PFIZER BIONTECH COVID-19 [Concomitant]
     Dosage: DOSE 2
     Route: 030
  5. PFIZER BIONTECH COVID-19 [Concomitant]
     Dosage: BOOSTER DOSE
     Route: 030

REACTIONS (6)
  - Venous operation [Unknown]
  - Varicose vein [Unknown]
  - COVID-19 [Unknown]
  - Injection site pain [Unknown]
  - Fall [Unknown]
  - Arthropathy [Unknown]

NARRATIVE: CASE EVENT DATE: 20220401
